FAERS Safety Report 23527483 (Version 1)
Quarter: 2024Q1

REPORT INFORMATION
  Report Type: Spontaneous
  Country: GB (occurrence: GB)
  Receive Date: 20240215
  Receipt Date: 20240215
  Transmission Date: 20240410
  Serious: Yes (Other)
  Sender: FDA-Public Use
  Company Number: None

PATIENT
  Age: 63 Year
  Sex: Female

DRUGS (3)
  1. DOXYCYCLINE [Suspect]
     Active Substance: DOXYCYCLINE
     Indication: Lower respiratory tract infection
     Dosage: 100 MG, 2X/DAY
     Dates: start: 20231025, end: 20231025
  2. DOXYCYCLINE [Suspect]
     Active Substance: DOXYCYCLINE
     Dosage: 100 MG, 1X/DAY
     Dates: start: 20231026, end: 20231029
  3. ACETAMINOPHEN [Concomitant]
     Active Substance: ACETAMINOPHEN
     Indication: Body temperature increased
     Dosage: UNK
     Dates: end: 2023

REACTIONS (12)
  - Anxiety [Recovered/Resolved with Sequelae]
  - Panic attack [Recovered/Resolved with Sequelae]
  - Nightmare [Recovering/Resolving]
  - Self-injurious ideation [Recovered/Resolved]
  - Constipation [Recovered/Resolved with Sequelae]
  - Weight decreased [Unknown]
  - Dyspnoea [Unknown]
  - Insomnia [Unknown]
  - Decreased appetite [Unknown]
  - Fear [Unknown]
  - Gastrooesophageal reflux disease [Unknown]
  - Duodenogastric reflux [Unknown]

NARRATIVE: CASE EVENT DATE: 20231027
